FAERS Safety Report 6610167-2 (Version None)
Quarter: 2010Q1

REPORT INFORMATION
  Report Type: 
  Country: None (occurrence: None)
  Receive Date: 20100219
  Receipt Date: 20100212
  Transmission Date: 20100710
  Serious: Yes (Hospitalization)
  Sender: FDA-Public Use
  Company Number: AMI0018061

PATIENT
  Age: 38 Year
  Sex: Female

DRUGS (5)
  1. TIMOLOL MALEATE [Suspect]
     Indication: GLAUCOMA
     Dosage: 2 DROPS BID - 046
     Dates: start: 20100113, end: 20100131
  2. DORZOLAMIDE HYDROCHLORIDE [Suspect]
     Indication: GLAUCOMA
     Dosage: 2 DROPS TID - 046
     Dates: start: 20100113, end: 20100131
  3. CRAVIT [Concomitant]
  4. FLUMETHOLON [Concomitant]
  5. HYALEIN [Concomitant]

REACTIONS (1)
  - CORNEAL OEDEMA [None]
